FAERS Safety Report 18545336 (Version 1)
Quarter: 2020Q4

REPORT INFORMATION
  Report Type: Spontaneous
  Country: US (occurrence: US)
  Receive Date: 20201124
  Receipt Date: 20201124
  Transmission Date: 20210114
  Serious: Yes (Life-Threatening, Hospitalization, Other)
  Sender: FDA-Public Use
  Company Number: None

PATIENT
  Age: 76 Year
  Sex: Male
  Weight: 56.11 kg

DRUGS (1)
  1. PHYTONADIONE 10MG/ML [Suspect]
     Active Substance: PHYTONADIONE
     Indication: HAEMORRHAGE PROPHYLAXIS
     Dosage: ?          OTHER ROUTE:IV PIGGYBACK?
     Dates: start: 20201123, end: 20201123

REACTIONS (4)
  - Hypotension [None]
  - Unresponsive to stimuli [None]
  - Pulse absent [None]
  - Cardio-respiratory arrest [None]

NARRATIVE: CASE EVENT DATE: 20201123
